FAERS Safety Report 21593346 (Version 1)
Quarter: 2022Q4

REPORT INFORMATION
  Report Type: Report from Study
  Country: CA (occurrence: CA)
  Receive Date: 20221114
  Receipt Date: 20221114
  Transmission Date: 20230113
  Serious: Yes (Other)
  Sender: FDA-Public Use
  Company Number: CA-SUN PHARMACEUTICAL INDUSTRIES LTD-2022R1-363569

PATIENT
  Sex: Female

DRUGS (5)
  1. AMOXICILLIN\CLAVULANIC ACID [Suspect]
     Active Substance: AMOXICILLIN\CLAVULANIC ACID
     Indication: Antibiotic therapy
     Dosage: 875-125MG, BID
     Route: 048
  2. AZITHROMYCIN [Suspect]
     Active Substance: AZITHROMYCIN
     Indication: COVID-19
     Dosage: 250 MILLIGRAM, DAILY
     Route: 048
  3. CEFTRIAXONE [Suspect]
     Active Substance: CEFTRIAXONE
     Indication: Bacterial infection
     Dosage: 2 GRAM, DAILY
     Route: 042
  4. ENOXAPARIN SODIUM [Suspect]
     Active Substance: ENOXAPARIN SODIUM
     Indication: Prophylaxis
     Dosage: 40 MILLIGRAM, DAILY
     Route: 058
  5. ENOXAPARIN SODIUM [Suspect]
     Active Substance: ENOXAPARIN SODIUM
     Dosage: 1.5 MILLIGRAM/KILOGRAM, DAILY
     Route: 058

REACTIONS (4)
  - Foetal hypokinesia [Unknown]
  - Condition aggravated [Unknown]
  - Exposure during pregnancy [Unknown]
  - Live birth [Unknown]
